FAERS Safety Report 9885943 (Version 1)
Quarter: 2014Q1

REPORT INFORMATION
  Report Type: Spontaneous
  Country: BR (occurrence: BR)
  Receive Date: 20140210
  Receipt Date: 20140210
  Transmission Date: 20141002
  Serious: Yes (Death)
  Sender: FDA-Public Use
  Company Number: BR-GLAXOSMITHKLINE-A1060092A

PATIENT
  Sex: Male

DRUGS (1)
  1. AVODART [Suspect]
     Indication: PRODUCT USED FOR UNKNOWN INDICATION
     Dosage: .5MG UNKNOWN
     Route: 048

REACTIONS (1)
  - Death [Fatal]
